FAERS Safety Report 12833480 (Version 1)
Quarter: 2016Q4

REPORT INFORMATION
  Report Type: Spontaneous
  Country: US (occurrence: US)
  Receive Date: 20161010
  Receipt Date: 20161010
  Transmission Date: 20170207
  Serious: No
  Sender: FDA-Public Use
  Company Number: US-UPSHER-SMITH LABORATORIES, INC.-15002254

PATIENT
  Sex: Female

DRUGS (1)
  1. FORTICAL [Suspect]
     Active Substance: CALCITONIN SALMON
     Indication: PRODUCT USED FOR UNKNOWN INDICATION
     Dosage: UNK, UNK
     Route: 045

REACTIONS (5)
  - Epistaxis [Not Recovered/Not Resolved]
  - Speech disorder [Recovered/Resolved]
  - Burning sensation [Recovered/Resolved]
  - Sneezing [Recovered/Resolved]
  - Sinus pain [Not Recovered/Not Resolved]

NARRATIVE: CASE EVENT DATE: 201508
